FAERS Safety Report 19678087 (Version 2)
Quarter: 2021Q3

REPORT INFORMATION
  Report Type: Spontaneous
  Country: US (occurrence: US)
  Receive Date: 20210810
  Receipt Date: 20210917
  Transmission Date: 20211014
  Serious: Yes (Other)
  Sender: FDA-Public Use
  Company Number: US-CELLTRION INC.-2021US010608

PATIENT

DRUGS (1)
  1. INFLIXIMAB (UNKNOWN) [Suspect]
     Active Substance: INFLIXIMAB
     Indication: COLITIS
     Dosage: 100MG; 365 MG TOTAL FROM FOUR VIALS
     Route: 065
     Dates: start: 20210723

REACTIONS (2)
  - Underdose [Unknown]
  - Joint swelling [Unknown]

NARRATIVE: CASE EVENT DATE: 20210730
